FAERS Safety Report 8354425-2 (Version None)
Quarter: 2012Q2

REPORT INFORMATION
  Report Type: 
  Country: None (occurrence: None)
  Receive Date: 20120511
  Receipt Date: 20110207
  Transmission Date: 20120825
  Serious: No
  Sender: FDA-Public Use
  Company Number: US-TEVA-2011000622

PATIENT
  Sex: Female
  Weight: 94.432 kg

DRUGS (7)
  1. ASPIRIN [Concomitant]
     Dates: start: 19960101
  2. CALCIUM [Concomitant]
     Dates: start: 19990101
  3. NUVIGIL [Suspect]
     Indication: MYOTONIC DYSTROPHY
  4. FLONATE [Concomitant]
     Dates: start: 20010101
  5. VITAMIN D [Concomitant]
     Dates: start: 19990101
  6. STOOL SOFTENER [Concomitant]
     Dates: start: 20060101
  7. NUVIGIL [Suspect]
     Indication: SLEEP APNOEA SYNDROME
     Dosage: 150 MILLIGRAM;
     Route: 048
     Dates: start: 20100501, end: 20101201

REACTIONS (1)
  - DRUG INEFFECTIVE [None]
